FAERS Safety Report 25722813 (Version 2)
Quarter: 2025Q4

REPORT INFORMATION
  Report Type: Spontaneous
  Country: CA (occurrence: CA)
  Receive Date: 20250825
  Receipt Date: 20251021
  Transmission Date: 20260117
  Serious: Yes (Death, Other)
  Sender: BRISTOL-MYERS SQUIBB COMPANY
  Company Number: CA-BRISTOL-MYERS SQUIBB COMPANY-2025-117484

PATIENT
  Age: 44 Year
  Sex: Female
  Weight: 97 kg

DRUGS (194)
  1. ORENCIA [Suspect]
     Active Substance: ABATACEPT
     Indication: Rheumatoid arthritis
  2. ORENCIA [Suspect]
     Active Substance: ABATACEPT
  3. ORENCIA [Suspect]
     Active Substance: ABATACEPT
  4. ORENCIA [Suspect]
     Active Substance: ABATACEPT
     Indication: Rheumatoid arthritis
  5. ORENCIA [Suspect]
     Active Substance: ABATACEPT
     Indication: Rheumatoid arthritis
  6. PERCOCET [Concomitant]
     Active Substance: ACETAMINOPHEN\OXYCODONE HYDROCHLORIDE
     Indication: Rheumatoid arthritis
  7. PERCOCET [Concomitant]
     Active Substance: ACETAMINOPHEN\OXYCODONE HYDROCHLORIDE
  8. ACETAMINOPHEN [Concomitant]
     Active Substance: ACETAMINOPHEN
     Indication: Rheumatoid arthritis
  9. ACETAMINOPHEN [Concomitant]
     Active Substance: ACETAMINOPHEN
     Indication: Crohn^s disease
  10. ACETAMINOPHEN [Concomitant]
     Active Substance: ACETAMINOPHEN
  11. ACETAMINOPHEN [Concomitant]
     Active Substance: ACETAMINOPHEN
  12. ACETAMINOPHEN [Concomitant]
     Active Substance: ACETAMINOPHEN
  13. ACETAMINOPHEN [Concomitant]
     Active Substance: ACETAMINOPHEN
  14. ACTEMRA [Concomitant]
     Active Substance: TOCILIZUMAB
     Indication: Rheumatoid arthritis
  15. ACTEMRA [Concomitant]
     Active Substance: TOCILIZUMAB
  16. ACTEMRA [Concomitant]
     Active Substance: TOCILIZUMAB
  17. ACTEMRA [Concomitant]
     Active Substance: TOCILIZUMAB
  18. ACTEMRA [Concomitant]
     Active Substance: TOCILIZUMAB
  19. ACTEMRA [Concomitant]
     Active Substance: TOCILIZUMAB
  20. ACTEMRA [Concomitant]
     Active Substance: TOCILIZUMAB
  21. ADALIMUMAB [Concomitant]
     Active Substance: ADALIMUMAB
     Indication: Rheumatoid arthritis
  22. ADALIMUMAB [Concomitant]
     Active Substance: ADALIMUMAB
     Indication: Psoriatic arthropathy
  23. ADALIMUMAB [Concomitant]
     Active Substance: ADALIMUMAB
  24. ADVIL [Concomitant]
     Active Substance: IBUPROFEN
     Indication: Product used for unknown indication
  25. ALENDRONIC ACID [Concomitant]
     Active Substance: ALENDRONIC ACID
     Indication: Rheumatoid arthritis
  26. ALENDRONIC ACID [Concomitant]
     Active Substance: ALENDRONIC ACID
  27. ALENDRONIC ACID [Concomitant]
     Active Substance: ALENDRONIC ACID
  28. ALENDRONIC ACID [Concomitant]
     Active Substance: ALENDRONIC ACID
  29. ALENDRONIC ACID [Concomitant]
     Active Substance: ALENDRONIC ACID
  30. ALENDRONIC ACID [Concomitant]
     Active Substance: ALENDRONIC ACID
  31. PANTOPRAZOLE SODIUM ANHYDROUS [Concomitant]
     Active Substance: PANTOPRAZOLE SODIUM ANHYDROUS
     Indication: Rheumatoid arthritis
  32. PANTOPRAZOLE SODIUM ANHYDROUS [Concomitant]
     Active Substance: PANTOPRAZOLE SODIUM ANHYDROUS
  33. PREDNISONE [Concomitant]
     Active Substance: PREDNISONE
     Indication: Rheumatoid arthritis
  34. PREDNISONE [Concomitant]
     Active Substance: PREDNISONE
     Indication: Condition aggravated
  35. ARAVA [Concomitant]
     Active Substance: LEFLUNOMIDE
     Indication: Rheumatoid arthritis
  36. ARAVA [Concomitant]
     Active Substance: LEFLUNOMIDE
  37. ARAVA [Concomitant]
     Active Substance: LEFLUNOMIDE
  38. ARAVA [Concomitant]
     Active Substance: LEFLUNOMIDE
  39. ARAVA [Concomitant]
     Active Substance: LEFLUNOMIDE
  40. ARAVA [Concomitant]
     Active Substance: LEFLUNOMIDE
  41. ARAVA [Concomitant]
     Active Substance: LEFLUNOMIDE
  42. ASACOL [Concomitant]
     Active Substance: MESALAMINE
     Indication: Crohn^s disease
  43. ATIVAN [Concomitant]
     Active Substance: LORAZEPAM
     Indication: Rheumatoid arthritis
  44. AZATHIOPRINE SODIUM [Concomitant]
     Active Substance: AZATHIOPRINE SODIUM
     Indication: Rheumatoid arthritis
  45. CAFFEINE [Concomitant]
     Active Substance: CAFFEINE
     Indication: Rheumatoid arthritis
  46. CAFFEINE CITRATE [Concomitant]
     Active Substance: CAFFEINE CITRATE
     Indication: Product used for unknown indication
  47. CALCIUM CARBONATE [Concomitant]
     Active Substance: CALCIUM CARBONATE
     Indication: Product used for unknown indication
  48. CELECOXIB [Concomitant]
     Active Substance: CELECOXIB
     Indication: Rheumatoid arthritis
  49. CELECOXIB [Concomitant]
     Active Substance: CELECOXIB
  50. CELECOXIB [Concomitant]
     Active Substance: CELECOXIB
  51. CELECOXIB [Concomitant]
     Active Substance: CELECOXIB
  52. CELECOXIB [Concomitant]
     Active Substance: CELECOXIB
  53. CELECOXIB [Concomitant]
     Active Substance: CELECOXIB
  54. CETIRIZINE [Concomitant]
     Active Substance: CETIRIZINE HYDROCHLORIDE
     Indication: Rheumatoid arthritis
  55. CETIRIZINE [Concomitant]
     Active Substance: CETIRIZINE HYDROCHLORIDE
  56. CETIRIZINE [Concomitant]
     Active Substance: CETIRIZINE HYDROCHLORIDE
  57. CHLORAPREP [Concomitant]
     Active Substance: CHLORHEXIDINE GLUCONATE\ISOPROPYL ALCOHOL
     Indication: Rheumatoid arthritis
  58. CHLORAPREP [Concomitant]
     Active Substance: CHLORHEXIDINE GLUCONATE\ISOPROPYL ALCOHOL
  59. CHLORHEXIDINE [Concomitant]
     Active Substance: CHLORHEXIDINE
     Indication: Rheumatoid arthritis
  60. CHLORHEXIDINE [Concomitant]
     Active Substance: CHLORHEXIDINE
  61. CHLORHEXIDINE [Concomitant]
     Active Substance: CHLORHEXIDINE
  62. CHLORHEXIDINE [Concomitant]
     Active Substance: CHLORHEXIDINE
  63. CHLORHEXIDINE [Concomitant]
     Active Substance: CHLORHEXIDINE
  64. CHOLECALCIFEROL [Concomitant]
     Active Substance: CHOLECALCIFEROL
     Indication: Rheumatoid arthritis
  65. CHOLECALCIFEROL [Concomitant]
     Active Substance: CHOLECALCIFEROL
  66. CIMZIA [Concomitant]
     Active Substance: CERTOLIZUMAB PEGOL
     Indication: Rheumatoid arthritis
  67. CIMZIA [Concomitant]
     Active Substance: CERTOLIZUMAB PEGOL
     Indication: Psoriasis
  68. CODEINE [Concomitant]
     Active Substance: CODEINE
     Indication: Rheumatoid arthritis
  69. COSENTYX [Concomitant]
     Active Substance: SECUKINUMAB
     Indication: Rheumatoid arthritis
  70. COSENTYX [Concomitant]
     Active Substance: SECUKINUMAB
     Indication: Psoriatic arthropathy
  71. DESOXIMETASONE [Concomitant]
     Active Substance: DESOXIMETASONE
     Indication: Rheumatoid arthritis
  72. DESOXIMETASONE [Concomitant]
     Active Substance: DESOXIMETASONE
  73. DESOXIMETASONE [Concomitant]
     Active Substance: DESOXIMETASONE
  74. DESOXIMETASONE [Concomitant]
     Active Substance: DESOXIMETASONE
  75. DESOXIMETASONE [Concomitant]
     Active Substance: DESOXIMETASONE
  76. DICLOFENAC POTASSIUM [Concomitant]
     Active Substance: DICLOFENAC POTASSIUM
     Indication: Rheumatoid arthritis
  77. DICLOFENAC SODIUM [Concomitant]
     Active Substance: DICLOFENAC SODIUM
     Indication: Rheumatoid arthritis
  78. DICLOFENAC SODIUM [Concomitant]
     Active Substance: DICLOFENAC SODIUM
  79. DICLOFENAC SODIUM [Concomitant]
     Active Substance: DICLOFENAC SODIUM
  80. DICLOFENAC SODIUM [Concomitant]
     Active Substance: DICLOFENAC SODIUM
  81. DICLOFENAC SODIUM [Concomitant]
     Active Substance: DICLOFENAC SODIUM
  82. DIPHENHYDRAMINE HYDROCHLORIDE [Concomitant]
     Active Substance: DIPHENHYDRAMINE HYDROCHLORIDE
     Indication: Product used for unknown indication
  83. DOXYCYCLINE HYCLATE [Concomitant]
     Active Substance: DOXYCYCLINE HYCLATE
     Indication: Rheumatoid arthritis
  84. DOXYCYCLINE HYCLATE [Concomitant]
     Active Substance: DOXYCYCLINE HYCLATE
  85. ENBREL [Concomitant]
     Active Substance: ETANERCEPT
     Indication: Rheumatoid arthritis
  86. ENBREL [Concomitant]
     Active Substance: ETANERCEPT
  87. ENBREL [Concomitant]
     Active Substance: ETANERCEPT
  88. ENBREL [Concomitant]
     Active Substance: ETANERCEPT
  89. ENBREL [Concomitant]
     Active Substance: ETANERCEPT
  90. ENBREL [Concomitant]
     Active Substance: ETANERCEPT
  91. ENBREL [Concomitant]
     Active Substance: ETANERCEPT
  92. ERELZI [Concomitant]
     Active Substance: ETANERCEPT-SZZS
     Indication: Rheumatoid arthritis
  93. ERGOCALCIFEROL [Concomitant]
     Active Substance: ERGOCALCIFEROL
     Indication: Rheumatoid arthritis
  94. ERYTHROMYCIN [Concomitant]
     Active Substance: ERYTHROMYCIN
     Indication: Product used for unknown indication
  95. FLUOROMETHOLONE [Concomitant]
     Active Substance: FLUOROMETHOLONE
     Indication: Product used for unknown indication
  96. FOLIC ACID [Concomitant]
     Active Substance: FOLIC ACID
     Indication: Rheumatoid arthritis
  97. FOLIC ACID [Concomitant]
     Active Substance: FOLIC ACID
  98. FOLIC ACID [Concomitant]
     Active Substance: FOLIC ACID
  99. FOLIC ACID [Concomitant]
     Active Substance: FOLIC ACID
  100. FOLIC ACID [Concomitant]
     Active Substance: FOLIC ACID
  101. FOLIC ACID [Concomitant]
     Active Substance: FOLIC ACID
  102. FOLIC ACID [Concomitant]
     Active Substance: FOLIC ACID
  103. FOLIC ACID [Concomitant]
     Active Substance: FOLIC ACID
  104. FOLIC ACID [Concomitant]
     Active Substance: FOLIC ACID
  105. FOSAMAX [Concomitant]
     Active Substance: ALENDRONATE SODIUM
     Indication: Rheumatoid arthritis
  106. FOSAMAX [Concomitant]
     Active Substance: ALENDRONATE SODIUM
  107. FOSAMAX [Concomitant]
     Active Substance: ALENDRONATE SODIUM
  108. FOSAPREPITANT [Concomitant]
     Active Substance: FOSAPREPITANT
     Indication: Rheumatoid arthritis
  109. GLUCOSAMINE [Concomitant]
     Active Substance: GLUCOSAMINE
     Indication: Rheumatoid arthritis
  110. HUMIRA [Concomitant]
     Active Substance: ADALIMUMAB
     Indication: Rheumatoid arthritis
  111. HUMIRA [Concomitant]
     Active Substance: ADALIMUMAB
  112. HUMIRA [Concomitant]
     Active Substance: ADALIMUMAB
  113. HUMIRA [Concomitant]
     Active Substance: ADALIMUMAB
  114. HYALURONIDASE [Concomitant]
     Active Substance: HYALURONIDASE
     Indication: Product used for unknown indication
  115. INFLIXIMAB [Concomitant]
     Active Substance: INFLIXIMAB
     Indication: Rheumatoid arthritis
  116. ISOPROPYL ALCOHOL [Concomitant]
     Active Substance: ISOPROPYL ALCOHOL
     Indication: Product used for unknown indication
     Dosage: LIQUID
  117. LANSOPRAZOLE [Concomitant]
     Active Substance: LANSOPRAZOLE
     Indication: Rheumatoid arthritis
     Dosage: CAPSULE DELAYED RELEASE
  118. LEFLUNOMIDE [Concomitant]
     Active Substance: LEFLUNOMIDE
     Indication: Rheumatoid arthritis
  119. LISINOPRIL [Concomitant]
     Active Substance: LISINOPRIL
     Indication: Product used for unknown indication
  120. CLIOQUINOL\FLUMETHASONE [Concomitant]
     Active Substance: CLIOQUINOL\FLUMETHASONE
     Indication: Product used for unknown indication
  121. LORAZEPAM [Concomitant]
     Active Substance: LORAZEPAM
     Indication: Rheumatoid arthritis
  122. MAGNESIUM [Concomitant]
     Active Substance: MAGNESIUM
     Indication: Product used for unknown indication
  123. MELOXICAM [Concomitant]
     Active Substance: MELOXICAM
     Indication: Product used for unknown indication
  124. MESALAMINE [Concomitant]
     Active Substance: MESALAMINE
     Indication: Crohn^s disease
  125. METHOTREXATE [Concomitant]
     Active Substance: METHOTREXATE
     Indication: Rheumatoid arthritis
  126. METHOTREXATE [Concomitant]
     Active Substance: METHOTREXATE
  127. METHOTREXATE [Concomitant]
     Active Substance: METHOTREXATE
  128. METHOTREXATE [Concomitant]
     Active Substance: METHOTREXATE
  129. METHOTREXATE [Concomitant]
     Active Substance: METHOTREXATE
  130. METHOTREXATE [Concomitant]
     Active Substance: METHOTREXATE
  131. METHOTREXATE [Concomitant]
     Active Substance: METHOTREXATE
  132. MORPHINE [Concomitant]
     Active Substance: MORPHINE
     Indication: Rheumatoid arthritis
  133. MYCOPHENOLATE MOFETIL [Concomitant]
     Active Substance: MYCOPHENOLATE MOFETIL
     Indication: Rheumatoid arthritis
  134. NAPROXEN SODIUM [Concomitant]
     Active Substance: NAPROXEN SODIUM
     Indication: Rheumatoid arthritis
  135. NAPROXEN SODIUM [Concomitant]
     Active Substance: NAPROXEN SODIUM
  136. OTEZLA [Concomitant]
     Active Substance: APREMILAST
     Indication: Rheumatoid arthritis
  137. OTEZLA [Concomitant]
     Active Substance: APREMILAST
  138. OTEZLA [Concomitant]
     Active Substance: APREMILAST
  139. PHTHALYLSULFATHIAZOLE [Concomitant]
     Active Substance: PHTHALYLSULFATHIAZOLE
     Indication: Rheumatoid arthritis
  140. PHTHALYLSULFATHIAZOLE [Concomitant]
     Active Substance: PHTHALYLSULFATHIAZOLE
  141. PHTHALYLSULFATHIAZOLE [Concomitant]
     Active Substance: PHTHALYLSULFATHIAZOLE
  142. PLAQUENIL [Concomitant]
     Active Substance: HYDROXYCHLOROQUINE SULFATE
     Indication: Rheumatoid arthritis
  143. PLAQUENIL [Concomitant]
     Active Substance: HYDROXYCHLOROQUINE SULFATE
  144. PREDNISONE [Concomitant]
     Active Substance: PREDNISONE
     Indication: Rheumatoid arthritis
  145. PREDNISONE [Concomitant]
     Active Substance: PREDNISONE
     Indication: Condition aggravated
  146. PREDNISONE [Concomitant]
     Active Substance: PREDNISONE
     Indication: Arthralgia
  147. PREDNISONE [Concomitant]
     Active Substance: PREDNISONE
  148. PREGABALIN [Concomitant]
     Active Substance: PREGABALIN
     Indication: Product used for unknown indication
  149. PREGABALIN [Concomitant]
     Active Substance: PREGABALIN
  150. PREVACID [Concomitant]
     Active Substance: LANSOPRAZOLE
     Indication: Product used for unknown indication
  151. PSEUDOEPHEDRINE HYDROCHLORIDE [Concomitant]
     Active Substance: PSEUDOEPHEDRINE HYDROCHLORIDE
     Indication: Rheumatoid arthritis
  152. PSEUDOEPHEDRINE HYDROCHLORIDE [Concomitant]
     Active Substance: PSEUDOEPHEDRINE HYDROCHLORIDE
  153. PSEUDOEPHEDRINE HYDROCHLORIDE [Concomitant]
     Active Substance: PSEUDOEPHEDRINE HYDROCHLORIDE
  154. PSEUDOEPHEDRINE HYDROCHLORIDE [Concomitant]
     Active Substance: PSEUDOEPHEDRINE HYDROCHLORIDE
  155. QUETIAPINE FUMARATE [Concomitant]
     Active Substance: QUETIAPINE FUMARATE
     Indication: Product used for unknown indication
  156. RAMIPRIL [Concomitant]
     Active Substance: RAMIPRIL
     Indication: Product used for unknown indication
  157. REACTINE [Concomitant]
     Indication: Rheumatoid arthritis
  158. REACTINE [Concomitant]
  159. REACTINE [Concomitant]
  160. REACTINE [Concomitant]
  161. RITUXIMAB [Concomitant]
     Active Substance: RITUXIMAB
     Indication: Rheumatoid arthritis
  162. RITUXIMAB [Concomitant]
     Active Substance: RITUXIMAB
  163. SULFASALAZINE [Concomitant]
     Active Substance: SULFASALAZINE
     Indication: Product used for unknown indication
  164. SULFASALAZINE [Concomitant]
     Active Substance: SULFASALAZINE
  165. ALBUTEROL [Concomitant]
     Active Substance: ALBUTEROL
     Indication: Product used for unknown indication
  166. SIMPONI [Concomitant]
     Active Substance: GOLIMUMAB
     Indication: Rheumatoid arthritis
  167. SIMPONI [Concomitant]
     Active Substance: GOLIMUMAB
  168. SIMPONI [Concomitant]
     Active Substance: GOLIMUMAB
  169. AMINOSALICYLATE SODIUM [Concomitant]
     Active Substance: AMINOSALICYLATE SODIUM
     Indication: Product used for unknown indication
  170. STELARA [Concomitant]
     Active Substance: USTEKINUMAB
     Indication: Product used for unknown indication
  171. SULFASALAZINE [Concomitant]
     Active Substance: SULFASALAZINE
     Indication: Rheumatoid arthritis
  172. SULFASALAZINE [Concomitant]
     Active Substance: SULFASALAZINE
  173. SULFASALAZINE [Concomitant]
     Active Substance: SULFASALAZINE
  174. SULFASALAZINE [Concomitant]
     Active Substance: SULFASALAZINE
  175. SULFASALAZINE [Concomitant]
     Active Substance: SULFASALAZINE
  176. SULFASALAZINE [Concomitant]
     Active Substance: SULFASALAZINE
  177. SULFASALAZINE [Concomitant]
     Active Substance: SULFASALAZINE
  178. SULFASALAZINE [Concomitant]
     Active Substance: SULFASALAZINE
  179. SULFASALAZINE [Concomitant]
     Active Substance: SULFASALAZINE
  180. SULFASALAZINE [Concomitant]
     Active Substance: SULFASALAZINE
  181. TOFACITINIB [Concomitant]
     Active Substance: TOFACITINIB
     Indication: Rheumatoid arthritis
  182. TUMS [Concomitant]
     Active Substance: CALCIUM CARBONATE
     Indication: Product used for unknown indication
  183. VITAMIN C [Concomitant]
     Active Substance: ASCORBIC ACID
     Indication: Product used for unknown indication
  184. XELJANZ [Concomitant]
     Active Substance: TOFACITINIB CITRATE
     Indication: Rheumatoid arthritis
  185. XELJANZ [Concomitant]
     Active Substance: TOFACITINIB CITRATE
  186. ZESTRIL [Concomitant]
     Active Substance: LISINOPRIL
     Indication: Product used for unknown indication
  187. ZESTRIL [Concomitant]
     Active Substance: LISINOPRIL
  188. ZESTRIL [Concomitant]
     Active Substance: LISINOPRIL
  189. FLUMETHASONE\SALICYLIC ACID [Concomitant]
     Active Substance: FLUMETHASONE\SALICYLIC ACID
     Indication: Rheumatoid arthritis
  190. FOSAPREPITANT DIMEGLUMINE [Concomitant]
     Active Substance: FOSAPREPITANT DIMEGLUMINE
     Indication: Product used for unknown indication
  191. DOXYCYCLINE [Concomitant]
     Active Substance: DOXYCYCLINE
     Indication: Rheumatoid arthritis
  192. FLUMETHASONE PIVALATE [Concomitant]
     Active Substance: FLUMETHASONE PIVALATE
     Indication: Rheumatoid arthritis
  193. PANTOPRAZOLE SODIUM [Concomitant]
     Active Substance: PANTOPRAZOLE SODIUM
     Indication: Rheumatoid arthritis
  194. PARA-AMINOSALICYLIC ACID [Concomitant]
     Active Substance: AMINOSALICYLIC ACID
     Indication: Product used for unknown indication

REACTIONS (1)
  - Death [Fatal]
